FAERS Safety Report 17435966 (Version 3)
Quarter: 2022Q1

REPORT INFORMATION
  Report Type: Report from Study
  Country: CA (occurrence: CA)
  Receive Date: 20200219
  Receipt Date: 20220322
  Transmission Date: 20220423
  Serious: Yes (Hospitalization, Other)
  Sender: FDA-Public Use
  Company Number: CA-BAUSCH-BL-2020-005014

PATIENT
  Age: 73 Year
  Sex: Male

DRUGS (2)
  1. SILIQ [Suspect]
     Active Substance: BRODALUMAB
     Indication: Psoriasis
     Dosage: 210MG/ 1.5 ML, (WEEK 1: STARTED FROM 04/FEB/2020, WEEK 2: STARTED FROM 11/FEB/2020)
     Route: 058
     Dates: start: 20200128, end: 20200211
  2. SILIQ [Suspect]
     Active Substance: BRODALUMAB
     Dosage: 210MG/ 1.5 ML, Q 2 WEEKS
     Route: 058

REACTIONS (6)
  - Gait inability [Not Recovered/Not Resolved]
  - Housebound [Not Recovered/Not Resolved]
  - Psoriasis [Recovering/Resolving]
  - Hospitalisation [Recovered/Resolved]
  - Pain [Not Recovered/Not Resolved]
  - Feeling abnormal [Not Recovered/Not Resolved]

NARRATIVE: CASE EVENT DATE: 20200101
